FAERS Safety Report 7270923-7 (Version None)
Quarter: 2011Q1

REPORT INFORMATION
  Report Type: 
  Country: None (occurrence: None)
  Receive Date: 20110202
  Receipt Date: 20110125
  Transmission Date: 20110831
  Serious: Yes (Other)
  Sender: FDA-Public Use
  Company Number: US-CEPHALON-2011000426

PATIENT
  Age: 91 Year
  Sex: Female

DRUGS (4)
  1. NUVIGIL [Suspect]
     Route: 048
     Dates: start: 20100801, end: 20110125
  2. NUVIGIL [Suspect]
     Route: 048
     Dates: start: 20100201
  3. NORVASC [Concomitant]
     Indication: HYPERTENSION
  4. ACTONEL [Concomitant]
     Indication: OSTEOPOROSIS

REACTIONS (1)
  - DYSKINESIA [None]
